FAERS Safety Report 24622846 (Version 1)
Quarter: 2024Q4

REPORT INFORMATION
  Report Type: Spontaneous
  Country: US (occurrence: US)
  Receive Date: 20241115
  Receipt Date: 20241115
  Transmission Date: 20250114
  Serious: No
  Sender: AJANTA PHARMA USA INC
  Company Number: US-AJANTA-2024AJA00163

PATIENT
  Age: 82 Year
  Sex: Female
  Weight: 120 kg

DRUGS (6)
  1. CHOLESTYRAMINE [Suspect]
     Active Substance: CHOLESTYRAMINE
     Indication: Diarrhoea
     Route: 048
     Dates: start: 202409
  2. CHOLESTYRAMINE [Suspect]
     Active Substance: CHOLESTYRAMINE
     Indication: Colectomy
  3. VALSARTAN [Concomitant]
     Active Substance: VALSARTAN
  4. ROSUVASTATIN [Concomitant]
     Active Substance: ROSUVASTATIN
  5. TIADYLT ER [Concomitant]
     Active Substance: DILTIAZEM HYDROCHLORIDE
  6. GABAPENTIN [Concomitant]
     Active Substance: GABAPENTIN
     Indication: Neuropathy peripheral

REACTIONS (6)
  - Oral discomfort [Unknown]
  - Product solubility abnormal [Unknown]
  - Product use complaint [Unknown]
  - Product physical consistency issue [Unknown]
  - Product substitution issue [Unknown]
  - Product use in unapproved indication [Unknown]

NARRATIVE: CASE EVENT DATE: 20240901
